FAERS Safety Report 7172155-X (Version None)
Quarter: 2010Q4

REPORT INFORMATION
  Report Type: 
  Country: None (occurrence: None)
  Receive Date: 20101217
  Receipt Date: 20100202
  Transmission Date: 20110411
  Serious: No
  Sender: FDA-Public Use
  Company Number: US-AMGEN-KDL390043

PATIENT

DRUGS (7)
  1. ENBREL [Suspect]
     Indication: PRODUCT USED FOR UNKNOWN INDICATION
     Dosage: 50 MG, QWK
     Route: 058
  2. PREDNISONE [Concomitant]
  3. TAMOXIFEN CITRATE [Concomitant]
     Dosage: 10 MG, UNK
     Route: 048
  4. LEFLUNOMIDE [Concomitant]
     Dosage: 10 MG, UNK
     Route: 048
  5. ASCORBIC ACID [Concomitant]
     Dosage: 1000 MG, UNK
     Route: 048
  6. ERGOCALCIFEROL [Concomitant]
     Dosage: UNK UNK, UNK
     Route: 048
  7. LOVAZA [Concomitant]
     Dosage: 1000 MG, UNK
     Route: 048

REACTIONS (5)
  - HEADACHE [None]
  - INJECTION SITE PRURITUS [None]
  - INJECTION SITE URTICARIA [None]
  - NASAL CONGESTION [None]
  - RHINORRHOEA [None]
